FAERS Safety Report 4641913-5 (Version None)
Quarter: 2005Q2

REPORT INFORMATION
  Report Type: 
  Country: None (occurrence: None)
  Receive Date: 20050420
  Receipt Date: 20050404
  Transmission Date: 20051028
  Serious: Yes (Hospitalization, Other)
  Sender: FDA-Public Use
  Company Number: USA050494834

PATIENT
  Age: 56 Year
  Sex: Female

DRUGS (11)
  1. HUMALOG [Suspect]
     Indication: DIABETES MELLITUS NON-INSULIN-DEPENDENT
     Dosage: 25 U DAY
     Dates: start: 19980101
  2. HUMULIN N [Suspect]
     Indication: DIABETES MELLITUS NON-INSULIN-DEPENDENT
     Dosage: 59 U DAY
     Dates: start: 19980101
  3. NEURONTIN (GABAPENTIN PFIZER) [Concomitant]
  4. ZOLOFT [Concomitant]
  5. VISTARIL [Concomitant]
  6. LIPITOR [Concomitant]
  7. AVANDIA [Concomitant]
  8. LASIX [Concomitant]
  9. CELEBREX [Concomitant]
  10. LISINOPRIL [Concomitant]
  11. LOPRESSOR [Concomitant]

REACTIONS (9)
  - ABSCESS [None]
  - EYE HAEMORRHAGE [None]
  - EYE SWELLING [None]
  - GASTRIC DISORDER [None]
  - GENITAL ABSCESS [None]
  - INJECTION SITE ABSCESS [None]
  - LEG AMPUTATION [None]
  - NEUROPATHY [None]
  - PHARMACEUTICAL PRODUCT COMPLAINT [None]
